FAERS Safety Report 7551061-2 (Version None)
Quarter: 2011Q2

REPORT INFORMATION
  Report Type: 
  Country: None (occurrence: None)
  Receive Date: 20110616
  Receipt Date: 20110613
  Transmission Date: 20111010
  Serious: Yes (Death)
  Sender: FDA-Public Use
  Company Number: US-BRISTOL-MYERS SQUIBB COMPANY-15755317

PATIENT
  Age: 73 Year
  Sex: Male

DRUGS (3)
  1. YERVOY [Suspect]
     Indication: MALIGNANT MELANOMA
     Dates: start: 20110511
  2. BENADRYL [Concomitant]
     Indication: PREMEDICATION
  3. STEROIDS [Concomitant]
     Indication: PREMEDICATION

REACTIONS (8)
  - HEPATORENAL SYNDROME [None]
  - ASTHENIA [None]
  - CONSTIPATION [None]
  - NEOPLASM MALIGNANT [None]
  - DIARRHOEA [None]
  - VISION BLURRED [None]
  - HYPONATRAEMIA [None]
  - OEDEMA [None]
